FAERS Safety Report 13502758 (Version 2)
Quarter: 2018Q1

REPORT INFORMATION
  Report Type: Report from Study
  Country: US (occurrence: US)
  Receive Date: 20170502
  Receipt Date: 20180123
  Transmission Date: 20180508
  Serious: Yes (Other)
  Sender: FDA-Public Use
  Company Number: US-ASTELLAS-2017US016366

PATIENT

DRUGS (4)
  1. MOMELOTINIB [Suspect]
     Active Substance: MOMELOTINIB
     Route: 065
  2. ERLOTINIB [Suspect]
     Active Substance: ERLOTINIB
     Indication: NON-SMALL CELL LUNG CANCER METASTATIC
     Route: 048
  3. MOMELOTINIB [Suspect]
     Active Substance: MOMELOTINIB
     Indication: NON-SMALL CELL LUNG CANCER METASTATIC
     Route: 065
  4. MOMELOTINIB [Suspect]
     Active Substance: MOMELOTINIB
     Route: 065

REACTIONS (3)
  - Neutrophil count decreased [Unknown]
  - Diarrhoea [Unknown]
  - Neutropenia [Unknown]
